FAERS Safety Report 18221490 (Version 8)
Quarter: 2021Q2

REPORT INFORMATION
  Report Type: Spontaneous
  Country: US (occurrence: US)
  Receive Date: 20200902
  Receipt Date: 20210423
  Transmission Date: 20210717
  Serious: No
  Sender: FDA-Public Use
  Company Number: US-PFIZER INC-2020301341

PATIENT
  Age: 66 Year
  Sex: Male

DRUGS (5)
  1. SUTENT [Suspect]
     Active Substance: SUNITINIB MALATE
     Dosage: 37.5 MG
  2. SUTENT [Suspect]
     Active Substance: SUNITINIB MALATE
     Dosage: 50 MG, CYCLIC (TAKES THE MEDICATION FOR 2 WEEKS ON AND 1 WEEK OFF)
  3. SUTENT [Suspect]
     Active Substance: SUNITINIB MALATE
     Indication: RENAL CANCER
     Dosage: 50 MG, DAILY
     Route: 048
  4. SUTENT [Suspect]
     Active Substance: SUNITINIB MALATE
     Dosage: 50 MG
     Dates: start: 20200826, end: 202011
  5. SUTENT [Suspect]
     Active Substance: SUNITINIB MALATE
     Dosage: 50 MG
     Dates: start: 20201226

REACTIONS (8)
  - Cardiac disorder [Unknown]
  - Thermal burn [Recovering/Resolving]
  - Ageusia [Recovered/Resolved]
  - Injury [Recovering/Resolving]
  - Epistaxis [Unknown]
  - Disturbance in attention [Unknown]
  - Eye swelling [Unknown]
  - Impaired healing [Recovering/Resolving]
